FAERS Safety Report 5677500-X (Version None)
Quarter: 2008Q1

REPORT INFORMATION
  Report Type: 
  Country: None (occurrence: None)
  Receive Date: 20080324
  Receipt Date: 20080313
  Transmission Date: 20080703
  Serious: Yes (Other)
  Sender: FDA-Public Use
  Company Number: BR-ROCHE-419975

PATIENT
  Age: 29 Year
  Sex: Female
  Weight: 60 kg

DRUGS (1)
  1. RIVOTRIL [Suspect]
     Indication: INSOMNIA
     Dosage: INDICATION REPORTED: ANXIETY AND PANIC SYNDROME.
     Route: 048
     Dates: start: 20021101

REACTIONS (7)
  - ASTHENIA [None]
  - ASTIGMATISM [None]
  - KERATOCONUS [None]
  - MUSCULAR WEAKNESS [None]
  - NAUSEA [None]
  - VISION BLURRED [None]
  - VITREOUS DISORDER [None]
